FAERS Safety Report 12156934 (Version 2)
Quarter: 2016Q1

REPORT INFORMATION
  Report Type: Spontaneous
  Country: US (occurrence: US)
  Receive Date: 20160307
  Receipt Date: 20160313
  Transmission Date: 20160526
  Serious: Yes (Other)
  Sender: FDA-Public Use
  Company Number: US-B.I. PHARMACEUTICALS,INC./RIDGEFIELD-2016-BI-13289NB

PATIENT

DRUGS (2)
  1. BI-SIFROL [Suspect]
     Active Substance: PRAMIPEXOLE
     Indication: PRODUCT USED FOR UNKNOWN INDICATION
     Route: 065
  2. BI-SIFROL [Suspect]
     Active Substance: PRAMIPEXOLE
     Dosage: 1 MG
     Route: 065

REACTIONS (9)
  - Kidney infection [Unknown]
  - Depression [Unknown]
  - Delusion [Unknown]
  - Hyperthermia [Unknown]
  - Hallucination, visual [Unknown]
  - Chills [Unknown]
  - Dehydration [Unknown]
  - Congenital cystic kidney disease [Unknown]
  - Disorientation [Unknown]
